FAERS Safety Report 5721917-1 (Version None)
Quarter: 2008Q2

REPORT INFORMATION
  Report Type: 
  Country: None (occurrence: None)
  Receive Date: 20080429
  Receipt Date: 20080417
  Transmission Date: 20081010
  Serious: Yes (Other)
  Sender: FDA-Public Use
  Company Number: BR-PFIZER INC-2008019153

PATIENT
  Sex: Male

DRUGS (6)
  1. CHAMPIX [Suspect]
     Indication: TOBACCO USER
     Route: 048
  2. METFORMIN HCL [Concomitant]
     Route: 048
  3. ATENOLOL [Concomitant]
  4. RAMIPRIL [Concomitant]
  5. SIMVASTATIN [Concomitant]
  6. SOMALGIN [Concomitant]

REACTIONS (3)
  - ANXIETY [None]
  - HYPERGLYCAEMIA [None]
  - NERVOUSNESS [None]
